FAERS Safety Report 10771633 (Version 1)
Quarter: 2015Q1

REPORT INFORMATION
  Report Type: Spontaneous
  Country: US (occurrence: US)
  Receive Date: 20150206
  Receipt Date: 20150206
  Transmission Date: 20150721
  Serious: No
  Sender: FDA-Public Use
  Company Number: US-ASTRAZENECA-2014SE31559

PATIENT
  Sex: Female

DRUGS (6)
  1. CRESTOR [Suspect]
     Active Substance: ROSUVASTATIN CALCIUM
     Route: 048
     Dates: start: 201402, end: 20140506
  2. FUROSEMIDE. [Concomitant]
     Active Substance: FUROSEMIDE
     Dosage: UNKNOWN UNK
  3. ENALAPRIL [Concomitant]
     Active Substance: ENALAPRIL
     Dosage: UNKNOWN UNK
  4. ATENOLOL. [Suspect]
     Active Substance: ATENOLOL
     Route: 065
  5. MULTIVITAMINS [Concomitant]
     Active Substance: VITAMINS
     Dosage: UNKNOWN UNK
  6. NIACIN. [Concomitant]
     Active Substance: NIACIN
     Dosage: UNKNOWN UNK

REACTIONS (1)
  - Myalgia [Unknown]
